FAERS Safety Report 11802907 (Version 1)
Quarter: 2015Q4

REPORT INFORMATION
  Report Type: Spontaneous
  Country: US (occurrence: US)
  Receive Date: 20151204
  Receipt Date: 20151204
  Transmission Date: 20160305
  Serious: Yes (Disabling)
  Sender: FDA-Public Use
  Company Number: US-TEVA-241693USA

PATIENT
  Sex: Female

DRUGS (3)
  1. METOCLOPRAMIDE. [Suspect]
     Active Substance: METOCLOPRAMIDE
     Indication: IMPAIRED GASTRIC EMPTYING
  2. METOCLOPRAMIDE. [Suspect]
     Active Substance: METOCLOPRAMIDE
     Indication: GASTROINTESTINAL DISORDER
     Dosage: 30-40 MG PER DAY
     Route: 065
     Dates: start: 200611, end: 200712
  3. REGLAN [Suspect]
     Active Substance: METOCLOPRAMIDE HYDROCHLORIDE
     Indication: IMPAIRED GASTRIC EMPTYING
     Route: 065

REACTIONS (10)
  - Stereotypy [Unknown]
  - Nervous system disorder [Unknown]
  - Dyskinesia [Unknown]
  - Asthenia [Unknown]
  - Eye movement disorder [Unknown]
  - Anxiety [Unknown]
  - Clumsiness [Unknown]
  - Tardive dyskinesia [Unknown]
  - Tremor [Unknown]
  - Extrapyramidal disorder [Unknown]

NARRATIVE: CASE EVENT DATE: 200712
